FAERS Safety Report 9751975 (Version 6)
Quarter: 2014Q2

REPORT INFORMATION
  Report Type: Report from Study
  Country: GB (occurrence: GB)
  Receive Date: 20131213
  Receipt Date: 20140604
  Transmission Date: 20141212
  Serious: Yes (Hospitalization)
  Sender: FDA-Public Use
  Company Number: GB-ROCHE-1241748

PATIENT
  Age: 61 Year
  Sex: Female
  Weight: 55.7 kg

DRUGS (10)
  1. TRASTUZUMAB EMTANSINE [Suspect]
     Indication: HER-2 POSITIVE BREAST CANCER
     Dosage: DOSE: 3.6MG/KG. MOST RECENT DOSE PRIOR TO VIRAL UPPER RESPIRATORY TRACT INFECTION: 20/JUN/213. MOST
     Route: 042
     Dates: start: 20130326
  2. TRASTUZUMAB EMTANSINE [Suspect]
     Route: 042
     Dates: start: 20131231
  3. ATENOLOL [Concomitant]
     Route: 065
     Dates: start: 2003
  4. LANSOPRAZOLE [Concomitant]
     Route: 065
     Dates: start: 2008
  5. ORAMORPH [Concomitant]
     Route: 065
     Dates: start: 20130622
  6. GLICLAZIDE [Concomitant]
     Route: 065
     Dates: start: 20131217, end: 20131224
  7. CORSODYL [Concomitant]
     Route: 065
     Dates: start: 20130601
  8. GELCLAIR (UNITED KINGDOM) [Concomitant]
     Dosage: DAILY DOSE: 1-2 TEASPOONS
     Route: 065
     Dates: start: 20130605
  9. CYCLIZINE [Concomitant]
     Route: 048
     Dates: start: 20130510
  10. CYCLIZINE [Concomitant]
     Route: 042
     Dates: start: 20130510

REACTIONS (2)
  - Viral infection [Recovered/Resolved]
  - Viral upper respiratory tract infection [Recovered/Resolved]
